FAERS Safety Report 9849293 (Version 1)
Quarter: 2014Q1

REPORT INFORMATION
  Report Type: Spontaneous
  Country: US (occurrence: US)
  Receive Date: 20140128
  Receipt Date: 20140128
  Transmission Date: 20141002
  Serious: No
  Sender: FDA-Public Use
  Company Number: US-ABBVIE-13P-163-1122075-00

PATIENT
  Age: 72 Year
  Sex: Male

DRUGS (2)
  1. LUPRON DEPOT [Suspect]
     Indication: PROSTATE CANCER
     Dates: start: 20130513, end: 20130513
  2. DEGARELIX [Suspect]
     Indication: PROSTATE CANCER STAGE IV
     Dosage: 1X
     Route: 058
     Dates: start: 201304

REACTIONS (5)
  - Night sweats [Unknown]
  - Hyperhidrosis [Not Recovered/Not Resolved]
  - Depression [Unknown]
  - Hot flush [Not Recovered/Not Resolved]
  - Depressed mood [Not Recovered/Not Resolved]
